FAERS Safety Report 4329819-2 (Version None)
Quarter: 2004Q1

REPORT INFORMATION
  Report Type: 
  Country: None (occurrence: None)
  Receive Date: 20040329
  Receipt Date: 20040317
  Transmission Date: 20041129
  Serious: Yes (Other)
  Sender: FDA-Public Use
  Company Number: 2004011354

PATIENT
  Age: 61 Year
  Sex: Male
  Weight: 88.5 kg

DRUGS (3)
  1. LIPITOR [Suspect]
     Indication: HYPERCHOLESTEROLAEMIA
     Dosage: 80 MG (DAILY), ORAL
     Route: 048
     Dates: start: 20030201, end: 20031025
  2. OMEPRAZOLE [Concomitant]
  3. INDAPAMIDE [Concomitant]

REACTIONS (5)
  - BLOOD CREATINE PHOSPHOKINASE INCREASED [None]
  - CEREBROVASCULAR ACCIDENT [None]
  - DYSARTHRIA [None]
  - MYALGIA [None]
  - VERTIGO [None]
